FAERS Safety Report 8560084 (Version 2)
Quarter: 2013Q1

REPORT INFORMATION
  Report Type: Spontaneous
  Country: US (occurrence: US)
  Receive Date: 20120514
  Receipt Date: 20121218
  Transmission Date: 20140127
  Serious: Yes (Other)
  Sender: FDA-Public Use
  Company Number: PHEH2012US009860

PATIENT
  Age: 60 Year
  Sex: Male

DRUGS (1)
  1. ZOMETA (ZOLEDRONATE) SOLUTION FOR INJECTION [Suspect]
     Indication: PLASMA CELL MYELOMA
     Route: 042
     Dates: end: 201202

REACTIONS (2)
  - Osteonecrosis of jaw [Unknown]
  - General physical health deterioration [Unknown]
